FAERS Safety Report 9745774 (Version 2)
Quarter: 2013Q4

REPORT INFORMATION
  Report Type: Report from Study
  Country: BR (occurrence: BR)
  Receive Date: 20131211
  Receipt Date: 20131211
  Transmission Date: 20140711
  Serious: Yes (Other)
  Sender: FDA-Public Use
  Company Number: BR-ROCHE-1103923

PATIENT
  Age: 58 Year
  Sex: Female
  Weight: 64 kg

DRUGS (3)
  1. ACTEMRA [Suspect]
     Indication: RHEUMATOID ARTHRITIS
     Route: 065
     Dates: start: 20110701, end: 20120628
  2. ACTEMRA [Suspect]
     Dosage: LAST DOSE ON 03/AUG/2013.
     Route: 065
     Dates: start: 201207
  3. ARAVA [Concomitant]
     Route: 065

REACTIONS (8)
  - Arthropathy [Unknown]
  - Dysphonia [Not Recovered/Not Resolved]
  - Influenza [Recovered/Resolved]
  - Increased upper airway secretion [Recovered/Resolved]
  - Sinusitis [Recovered/Resolved]
  - Cough [Recovered/Resolved]
  - Weight decreased [Not Recovered/Not Resolved]
  - Postoperative wound infection [Recovered/Resolved]
